FAERS Safety Report 9258941 (Version 1)
Quarter: 2013Q2

REPORT INFORMATION
  Report Type: Spontaneous
  Country: GR (occurrence: GR)
  Receive Date: 20130426
  Receipt Date: 20130426
  Transmission Date: 20140414
  Serious: Yes (Hospitalization)
  Sender: FDA-Public Use
  Company Number: GR-009507513-1304GRC013520

PATIENT
  Age: 58 Year
  Sex: Female

DRUGS (1)
  1. VICTRELIS [Suspect]
     Dosage: UNK
     Route: 048

REACTIONS (4)
  - Haematocrit decreased [Unknown]
  - Lung infection [Unknown]
  - Transfusion [Unknown]
  - Pyrexia [Recovering/Resolving]
